FAERS Safety Report 9707335 (Version 1)
Quarter: 2013Q4

REPORT INFORMATION
  Report Type: Spontaneous
  Country: US (occurrence: US)
  Receive Date: 20131125
  Receipt Date: 20131125
  Transmission Date: 20140711
  Serious: No
  Sender: FDA-Public Use
  Company Number: US-GLAXOSMITHKLINE-A1022851A

PATIENT
  Sex: Female

DRUGS (5)
  1. FLOVENT [Suspect]
     Indication: CHRONIC OBSTRUCTIVE PULMONARY DISEASE
     Dosage: 1PUFF TWICE PER DAY
     Route: 055
     Dates: start: 201301
  2. LEVOTHYROXINE [Concomitant]
  3. TRIAMTERENE [Concomitant]
  4. BABY ASPIRIN [Concomitant]
  5. ADVIL [Concomitant]

REACTIONS (4)
  - Aphonia [Not Recovered/Not Resolved]
  - Cough [Unknown]
  - Dry throat [Unknown]
  - Dysphonia [Unknown]
